FAERS Safety Report 8517929-5 (Version None)
Quarter: 2012Q3

REPORT INFORMATION
  Report Type: 
  Country: None (occurrence: None)
  Receive Date: 20120718
  Receipt Date: 20110720
  Transmission Date: 20120928
  Serious: No
  Sender: FDA-Public Use
  Company Number: US-BRISTOL-MYERS SQUIBB COMPANY-15914179

PATIENT
  Sex: Male

DRUGS (1)
  1. COUMADIN [Suspect]

REACTIONS (5)
  - EPISTAXIS [None]
  - DIZZINESS [None]
  - RASH [None]
  - CHEST PAIN [None]
  - PAIN IN EXTREMITY [None]
